FAERS Safety Report 9994908 (Version 1)
Quarter: 2014Q1

REPORT INFORMATION
  Report Type: Report from Study
  Country: GB (occurrence: GB)
  Receive Date: 20140311
  Receipt Date: 20140311
  Transmission Date: 20141002
  Serious: Yes (Other)
  Sender: FDA-Public Use
  Company Number: GB-JNJFOC-20140212394

PATIENT
  Age: 79 Year
  Sex: Male
  Weight: 110 kg

DRUGS (8)
  1. STELARA [Suspect]
     Indication: PSORIASIS
     Route: 058
     Dates: start: 20100929
  2. RIFINAH [Concomitant]
     Route: 065
     Dates: start: 20100712
  3. CODEIN PHOSPHATE [Concomitant]
     Route: 065
     Dates: start: 20110619
  4. TERAZOSIN [Concomitant]
     Route: 065
     Dates: start: 20110610
  5. PARACETAMOL [Concomitant]
     Route: 065
     Dates: start: 20110610
  6. QUININE [Concomitant]
     Route: 065
     Dates: start: 20110610
  7. OMEPRAZOLE [Concomitant]
     Route: 065
     Dates: start: 20100106
  8. ASPIRIN [Concomitant]
     Route: 065
     Dates: start: 20110619

REACTIONS (1)
  - Basal cell carcinoma [Not Recovered/Not Resolved]
